FAERS Safety Report 4624636-8 (Version None)
Quarter: 2005Q1

REPORT INFORMATION
  Report Type: 
  Country: None (occurrence: None)
  Receive Date: 20050107
  Receipt Date: 20040910
  Transmission Date: 20050727
  Serious: No
  Sender: FDA-Public Use
  Company Number: 234640K04USA

PATIENT
  Age: 54 Year
  Sex: Female

DRUGS (2)
  1. REBIF [Suspect]
     Indication: MULTIPLE SCLEROSIS
     Dates: start: 20040721
  2. METHOTREXATE [Concomitant]

REACTIONS (4)
  - HOT FLUSH [None]
  - HYPERHIDROSIS [None]
  - WEIGHT DECREASED [None]
  - WHITE BLOOD CELL COUNT DECREASED [None]
